FAERS Safety Report 12927036 (Version 1)
Quarter: 2016Q4

REPORT INFORMATION
  Report Type: Spontaneous
  Country: CN (occurrence: CN)
  Receive Date: 20161108
  Receipt Date: 20161108
  Transmission Date: 20170207
  Serious: Yes (Other)
  Sender: FDA-Public Use
  Company Number: CN-ASTRAZENECA-2016SF16472

PATIENT
  Age: 11744 Day
  Sex: Female
  Weight: 50 kg

DRUGS (9)
  1. DEPAKIN [Concomitant]
     Active Substance: VALPROATE SODIUM
     Indication: DEPRESSION
     Route: 048
     Dates: start: 20160510, end: 20160527
  2. SEROQUEL [Suspect]
     Active Substance: QUETIAPINE FUMARATE
     Indication: BIPOLAR DISORDER
     Dosage: 1/3 TABET DAILY FOR MORE THAN HALF A YEAR
     Route: 048
     Dates: end: 20160506
  3. SEROQUEL [Suspect]
     Active Substance: QUETIAPINE FUMARATE
     Indication: PSYCHOTIC DISORDER
     Dosage: 1/3 TABET DAILY FOR MORE THAN HALF A YEAR
     Route: 048
     Dates: end: 20160506
  4. DEPAKIN [Concomitant]
     Active Substance: VALPROATE SODIUM
     Indication: PSYCHOTIC DISORDER
     Route: 048
     Dates: start: 20160510, end: 20160527
  5. SEROQUEL [Suspect]
     Active Substance: QUETIAPINE FUMARATE
     Indication: BIPOLAR DISORDER
     Dosage: 0.2 G, ONE TABLET IN THE AFTERNOON AND TWO TABLETS IN THE EVENING
     Route: 048
     Dates: start: 20160506, end: 20160520
  6. SEROQUEL [Suspect]
     Active Substance: QUETIAPINE FUMARATE
     Indication: PSYCHOTIC DISORDER
     Dosage: 0.2 G, ONE TABLET IN THE AFTERNOON AND TWO TABLETS IN THE EVENING
     Route: 048
     Dates: start: 20160506, end: 20160520
  7. DEPAKIN [Concomitant]
     Active Substance: VALPROATE SODIUM
     Indication: BIPOLAR DISORDER
     Route: 048
     Dates: start: 20160510, end: 20160527
  8. SEROQUEL [Suspect]
     Active Substance: QUETIAPINE FUMARATE
     Indication: DEPRESSION
     Dosage: 0.2 G, ONE TABLET IN THE AFTERNOON AND TWO TABLETS IN THE EVENING
     Route: 048
     Dates: start: 20160506, end: 20160520
  9. SEROQUEL [Suspect]
     Active Substance: QUETIAPINE FUMARATE
     Indication: DEPRESSION
     Dosage: 1/3 TABET DAILY FOR MORE THAN HALF A YEAR
     Route: 048
     Dates: end: 20160506

REACTIONS (1)
  - Hyperprolactinaemia [Unknown]

NARRATIVE: CASE EVENT DATE: 20160515
